FAERS Safety Report 10533517 (Version 1)
Quarter: 2014Q4

REPORT INFORMATION
  Report Type: Spontaneous
  Country: NL (occurrence: None)
  Receive Date: 20141020
  Receipt Date: 20141020
  Transmission Date: 20150529
  Serious: Yes (Other)
  Sender: FDA-Public Use
  Company Number: IMP_07953_2014

PATIENT
  Age: 26 Year
  Sex: Male

DRUGS (4)
  1. DIVALPROEX SODIUM. [Suspect]
     Active Substance: DIVALPROEX SODIUM
     Indication: PRODUCT USED FOR UNKNOWN INDICATION
  2. BACLOFEN. [Concomitant]
     Active Substance: BACLOFEN
  3. ACETAMINOPHEN. [Concomitant]
     Active Substance: ACETAMINOPHEN
  4. CLEMASTINE [Concomitant]
     Active Substance: CLEMASTINE

REACTIONS (4)
  - Drug reaction with eosinophilia and systemic symptoms [None]
  - Acute hepatic failure [None]
  - Petechiae [None]
  - Folliculitis [None]
